FAERS Safety Report 21162237 (Version 2)
Quarter: 2022Q3

REPORT INFORMATION
  Report Type: Report from Study
  Country: CA (occurrence: None)
  Receive Date: 20220802
  Receipt Date: 20220823
  Transmission Date: 20221026
  Serious: Yes (Death, Other)
  Sender: FDA-Public Use
  Company Number: 2022A271509

PATIENT
  Sex: Male

DRUGS (8)
  1. CALQUENCE [Suspect]
     Active Substance: ACALABRUTINIB
     Indication: Chronic lymphocytic leukaemia
     Route: 048
     Dates: start: 20210302
  2. ALLOPURINOL [Concomitant]
     Active Substance: ALLOPURINOL
     Dosage: 300.0MG UNKNOWN
  3. AMLODIPINE [Concomitant]
     Active Substance: AMLODIPINE BESYLATE
     Dosage: 10.0MG UNKNOWN
  4. XARELTO [Concomitant]
     Active Substance: RIVAROXABAN
     Dosage: 10.0MG UNKNOWN
  5. LAMIVUDINE [Concomitant]
     Active Substance: LAMIVUDINE
     Dosage: 100.0MG UNKNOWN
  6. INDAPAMIDE\PERINDOPRIL [Concomitant]
     Active Substance: INDAPAMIDE\PERINDOPRIL
     Dosage: 8/25 MG
  7. ATORVASTATIN [Concomitant]
     Active Substance: ATORVASTATIN
     Dosage: 40.0MG UNKNOWN
  8. EZETIMIBE [Concomitant]
     Active Substance: EZETIMIBE
     Dosage: 10.0MG UNKNOWN

REACTIONS (1)
  - Death [Fatal]
